FAERS Safety Report 7711906-X (Version None)
Quarter: 2011Q3

REPORT INFORMATION
  Report Type: 
  Country: None (occurrence: None)
  Receive Date: 20110826
  Receipt Date: 20110823
  Transmission Date: 20111222
  Serious: Yes (Hospitalization)
  Sender: FDA-Public Use
  Company Number: US-BRISTOL-MYERS SQUIBB COMPANY-15962558

PATIENT
  Age: 46 Year
  Sex: Male

DRUGS (2)
  1. COUMADIN [Suspect]
     Indication: THROMBOSIS
     Dosage: 5MG/DAY,EXCEPT MONDAY 7.5MG/DAY
     Route: 048
     Dates: start: 20110602
  2. COUMADIN [Suspect]
     Indication: DEEP VEIN THROMBOSIS
     Dosage: 5MG/DAY,EXCEPT MONDAY 7.5MG/DAY
     Route: 048
     Dates: start: 20110602

REACTIONS (2)
  - GASTROINTESTINAL HAEMORRHAGE [None]
  - DIVERTICULITIS [None]
